FAERS Safety Report 10059493 (Version 1)
Quarter: 2014Q2

REPORT INFORMATION
  Report Type: Report from Study
  Country: US (occurrence: US)
  Receive Date: 20140404
  Receipt Date: 20140404
  Transmission Date: 20141212
  Serious: Yes (Other)
  Sender: FDA-Public Use
  Company Number: US-ALEXION-A200901358

PATIENT
  Sex: Female

DRUGS (2)
  1. SOLIRIS [Suspect]
     Indication: PAROXYSMAL NOCTURNAL HAEMOGLOBINURIA
     Dosage: UNK
     Route: 042
  2. TAMOXIFEN [Concomitant]
     Indication: CHEMOTHERAPY
     Route: 065

REACTIONS (3)
  - Haemoglobin decreased [Unknown]
  - Breast reconstruction [Unknown]
  - Sinus disorder [Unknown]
